FAERS Safety Report 26080753 (Version 2)
Quarter: 2025Q4

REPORT INFORMATION
  Report Type: Spontaneous
  Country: GB (occurrence: GB)
  Receive Date: 20251124
  Receipt Date: 20251212
  Transmission Date: 20260117
  Serious: Yes (Other)
  Sender: AMGEN
  Company Number: None

PATIENT
  Age: 74 Year
  Weight: 62 kg

DRUGS (7)
  1. FILGRASTIM [Suspect]
     Active Substance: FILGRASTIM
     Indication: Product used for unknown indication
     Dosage: 300 MICROGRAM, EVERY 1-2 WEEKS
     Route: 058
     Dates: start: 202101
  2. FILGRASTIM [Suspect]
     Active Substance: FILGRASTIM
     Dosage: 300 MICROGRAM, QWK
     Route: 058
     Dates: start: 202209
  3. CANDESARTAN [Concomitant]
     Active Substance: CANDESARTAN
     Dosage: 2 MILLIGRAM, QD
     Route: 048
     Dates: start: 20220114
  4. EPOETIN BETA [Concomitant]
     Active Substance: ERYTHROPOIETIN
     Dosage: 60000 DOSAGE FORM, QWK
     Route: 058
     Dates: start: 20220101
  5. FOLIC ACID [Concomitant]
     Active Substance: FOLIC ACID
     Dosage: 5 MILLIGRAM, QD
     Route: 048
     Dates: start: 20210629
  6. HYDROXOCOBALAMIN [Concomitant]
     Active Substance: HYDROXOCOBALAMIN
     Dosage: 1 MILLIGRAM, Q3MO
     Route: 030
     Dates: start: 20180105
  7. METHOTREXATE [Concomitant]
     Active Substance: METHOTREXATE
     Indication: Pneumonitis
     Dosage: UNK
     Dates: start: 2022

REACTIONS (2)
  - Chronic kidney disease [Unknown]
  - Glomerulonephritis [Unknown]
